FAERS Safety Report 6929922-4 (Version None)
Quarter: 2010Q3

REPORT INFORMATION
  Report Type: 
  Country: None (occurrence: None)
  Receive Date: 20100817
  Receipt Date: 20100817
  Transmission Date: 20110219
  Serious: Yes (Disabling)
  Sender: FDA-Public Use
  Company Number: None

PATIENT
  Sex: Female
  Weight: 55.3388 kg

DRUGS (1)
  1. SINGULAIR [Suspect]
     Indication: LUNG DISORDER
     Dosage: 1 AT BEDTIME
     Dates: start: 20050201, end: 20091201

REACTIONS (1)
  - PARAESTHESIA [None]
